FAERS Safety Report 9048939 (Version 2)
Quarter: 2013Q1

REPORT INFORMATION
  Report Type: Report from Study
  Country: US (occurrence: US)
  Receive Date: 20130204
  Receipt Date: 20130311
  Transmission Date: 20140127
  Serious: Yes (Death, Other)
  Sender: FDA-Public Use
  Company Number: US-ASTELLAS-2013US001236

PATIENT
  Age: 85 None
  Sex: Male
  Weight: 53 kg

DRUGS (2)
  1. ERLOTINIB TABLET [Suspect]
     Indication: PANCREATIC CARCINOMA
     Dosage: 100 MG, UID/QD
     Route: 048
     Dates: start: 20121207
  2. GEMZAR [Concomitant]
     Indication: PANCREATIC CARCINOMA METASTATIC
     Dosage: UNK
     Route: 065

REACTIONS (9)
  - Death [Fatal]
  - Pleurodesis [Unknown]
  - Anaemia [Unknown]
  - Early satiety [Unknown]
  - Fatigue [Unknown]
  - Weight decreased [Unknown]
  - Decreased appetite [Unknown]
  - Headache [Unknown]
  - Constipation [Unknown]
